FAERS Safety Report 9636335 (Version 1)
Quarter: 2013Q4

REPORT INFORMATION
  Report Type: Spontaneous
  Country: US (occurrence: US)
  Receive Date: 20131021
  Receipt Date: 20131021
  Transmission Date: 20140711
  Serious: Yes (Disabling, Other)
  Sender: FDA-Public Use
  Company Number: US-SA-2013SA103654

PATIENT
  Age: 69 Year
  Sex: Female

DRUGS (4)
  1. LANTUS [Suspect]
     Dosage: DOSE:85 UNIT(S)
     Route: 065
  2. LANTUS SOLOSTAR [Suspect]
     Dosage: DOSE:85 UNIT(S)
     Route: 058
  3. NOVOLOG [Suspect]
     Route: 065
  4. SOLOSTAR [Concomitant]

REACTIONS (3)
  - Cardiac failure congestive [Unknown]
  - Cardiac disorder [Unknown]
  - Disability [Unknown]
